FAERS Safety Report 7278474-0 (Version None)
Quarter: 2011Q1

REPORT INFORMATION
  Report Type: 
  Country: None (occurrence: None)
  Receive Date: 20110207
  Receipt Date: 20110128
  Transmission Date: 20110831
  Serious: Yes (Hospitalization, Other)
  Sender: FDA-Public Use
  Company Number: US-JNJFOC-20100807811

PATIENT
  Sex: Female

DRUGS (4)
  1. LEVAQUIN [Suspect]
     Indication: BRONCHITIS
     Route: 048
  2. LEVAQUIN [Suspect]
     Indication: BRONCHOSCOPY
     Route: 048
  3. LEVAQUIN [Suspect]
     Indication: SINUSITIS
     Route: 048
  4. LEVAQUIN [Suspect]
     Indication: RESPIRATORY TRACT INFECTION
     Route: 048

REACTIONS (8)
  - ROTATOR CUFF SYNDROME [None]
  - TENDON DISORDER [None]
  - WRONG TECHNIQUE IN DRUG USAGE PROCESS [None]
  - DRUG RESISTANCE [None]
  - TENDONITIS [None]
  - JOINT INJURY [None]
  - TENDON RUPTURE [None]
  - MUSCULOSKELETAL PAIN [None]
